FAERS Safety Report 6616123-2 (Version None)
Quarter: 2010Q1

REPORT INFORMATION
  Report Type: 
  Country: None (occurrence: None)
  Receive Date: 20100305
  Receipt Date: 20100223
  Transmission Date: 20100710
  Serious: Yes (Other)
  Sender: FDA-Public Use
  Company Number: PHEH2010US02717

PATIENT
  Sex: Female
  Weight: 67.574 kg

DRUGS (1)
  1. ZOMETA [Suspect]
     Indication: METASTASES TO BONE
     Dosage: 3.0 (UNIT UNSPECIFIED) EVERY 21 DAYS
     Route: 042
     Dates: start: 20090506, end: 20091021

REACTIONS (1)
  - OSTEONECROSIS [None]
